FAERS Safety Report 8359074-8 (Version None)
Quarter: 2012Q2

REPORT INFORMATION
  Report Type: 
  Country: None (occurrence: None)
  Receive Date: 20120515
  Receipt Date: 20120507
  Transmission Date: 20120825
  Serious: Yes (Other)
  Sender: FDA-Public Use
  Company Number: GB-BRISTOL-MYERS SQUIBB COMPANY-16440935

PATIENT
  Age: 75 Year
  Sex: Male

DRUGS (14)
  1. VERAPAMIL [Suspect]
     Indication: ATRIAL FIBRILLATION
     Route: 065
  2. RAMIPRIL [Suspect]
     Route: 065
  3. METFORMIN HCL [Suspect]
     Route: 048
  4. SPIRIVA [Concomitant]
  5. FORMOTEROL FUMARATE [Suspect]
     Route: 055
  6. PREDNISOLONE [Suspect]
     Indication: CHRONIC OBSTRUCTIVE PULMONARY DISEASE
     Route: 065
  7. SYMBICORT [Concomitant]
  8. ATORVASTATIN CALCIUM [Suspect]
     Route: 065
  9. CYSTEINE [Suspect]
     Route: 065
  10. FUROSEMIDE [Suspect]
     Route: 065
  11. WARFARIN SODIUM [Suspect]
     Indication: ATRIAL FIBRILLATION
     Route: 065
  12. FORMOTEROL FUMARATE [Suspect]
  13. ALBUTEROL [Suspect]
     Route: 065
  14. CARBOCISTEINE [Concomitant]

REACTIONS (1)
  - HALLUCINATION [None]
